FAERS Safety Report 9229401 (Version 1)
Quarter: 2013Q2

REPORT INFORMATION
  Report Type: Spontaneous
  Country: US (occurrence: US)
  Receive Date: 20130412
  Receipt Date: 20130412
  Transmission Date: 20140414
  Serious: Yes (Other)
  Sender: FDA-Public Use
  Company Number: US-ASTELLAS-2013US001245

PATIENT
  Sex: Female
  Weight: 35 kg

DRUGS (2)
  1. PROGRAF [Suspect]
     Indication: RENAL TRANSPLANT
     Dosage: 5 MG (2 MG IN THE MORNING, 3 MG IN THE EVENING), UID/QD
     Route: 048
     Dates: start: 20030608
  2. TACROLIMUS [Suspect]
     Indication: RENAL TRANSPLANT
     Dosage: UNK
     Route: 065

REACTIONS (2)
  - Mood altered [Recovered/Resolved]
  - Insomnia [Recovered/Resolved]
